FAERS Safety Report 15053127 (Version 1)
Quarter: 2018Q2

REPORT INFORMATION
  Report Type: Report from Study
  Country: None (occurrence: TR)
  Receive Date: 20180622
  Receipt Date: 20180622
  Transmission Date: 20180711
  Serious: Yes (Other)
  Sender: FDA-Public Use
  Company Number: TR-ABBVIE-17K-161-2206611-00

PATIENT
  Age: 80 Year
  Sex: Male

DRUGS (5)
  1. DUODOPA [Suspect]
     Active Substance: CARBIDOPA\LEVODOPA
     Dosage: MORNING : 7.2 ML?CONTINOUS: 3.8 ML?EXTRA: 1.5 ML
     Route: 050
     Dates: start: 20180619
  2. EUTHYROX [Concomitant]
     Active Substance: LEVOTHYROXINE SODIUM
     Indication: HYPOTHYROIDISM
     Route: 048
     Dates: start: 20171020
  3. DUODOPA [Suspect]
     Active Substance: CARBIDOPA\LEVODOPA
     Indication: PARKINSON^S DISEASE
     Dosage: MORNING: 7.1 ML??CONTINOUS: 3.0 ML??EXTRA: 1.0 ML
     Route: 050
     Dates: start: 20171031, end: 20171227
  4. DUODOPA [Suspect]
     Active Substance: CARBIDOPA\LEVODOPA
     Dosage: MORNING: 7.2 ML??CONTINOUS: 3.2 ML??EXTRA: 1.0 ML
     Route: 050
     Dates: start: 20171227, end: 20180619
  5. ABILIFY [Concomitant]
     Active Substance: ARIPIPRAZOLE
     Indication: PARKINSON^S DISEASE
     Route: 048

REACTIONS (4)
  - Renal cyst [Not Recovered/Not Resolved]
  - Haematuria [Recovered/Resolved]
  - Weight decreased [Recovered/Resolved]
  - Bradykinesia [Recovering/Resolving]

NARRATIVE: CASE EVENT DATE: 201711
